FAERS Safety Report 8615195-3 (Version None)
Quarter: 2012Q3

REPORT INFORMATION
  Report Type: 
  Country: None (occurrence: None)
  Receive Date: 20120823
  Receipt Date: 20120822
  Transmission Date: 20120928
  Serious: Yes (Other)
  Sender: FDA-Public Use
  Company Number: US-BAYER-2012-086601

PATIENT
  Sex: Female

DRUGS (22)
  1. FUROSEMIDE [Concomitant]
  2. SIMVASTATIN [Concomitant]
  3. VITAMIN B-12 [Concomitant]
     Dates: start: 20090129, end: 20090129
  4. WARFARIN SODIUM [Concomitant]
  5. AMLODIPINE [Concomitant]
  6. CLOPIDEGREL [Concomitant]
  7. DEPO-ESTRADIOL [Concomitant]
     Dates: start: 20081029, end: 20081029
  8. VITAMIN B-12 [Concomitant]
     Dates: start: 20081029, end: 20081029
  9. TRAMADOL HCL [Concomitant]
  10. ENALAPRIL MALEATE [Concomitant]
  11. DEPO-ESTRADIOL [Concomitant]
     Dates: start: 20090225, end: 20090225
  12. INFLUENZA VACCIN [Concomitant]
     Dates: start: 20090829, end: 20090829
  13. VITAMIN B-12 [Concomitant]
     Dates: start: 20081112, end: 20081112
  14. CIPROFLOXACIN HCL [Suspect]
  15. LEVOTHYROXINE SODIUM [Concomitant]
  16. RANITIDINE [Concomitant]
  17. CARVEDILOL [Concomitant]
  18. PNEUMOCOCCAL VACCINE [Concomitant]
  19. POTASSIUM CHLORIDE [Concomitant]
  20. DEPO-ESTRADIOL [Concomitant]
     Dates: start: 20081112, end: 20081112
  21. ISOSORBIDE [Concomitant]
  22. INFLUENZA VACCIN [Concomitant]
     Dates: start: 20100923, end: 20100923

REACTIONS (1)
  - ANAPHYLACTIC REACTION [None]
